FAERS Safety Report 9671152 (Version 6)
Quarter: 2014Q3

REPORT INFORMATION
  Report Type: Spontaneous
  Country: US (occurrence: US)
  Receive Date: 20131106
  Receipt Date: 20140702
  Transmission Date: 20150326
  Serious: Yes (Hospitalization, Other)
  Sender: FDA-Public Use
  Company Number: US-PFIZER INC-2013313844

PATIENT
  Age: 72 Year
  Sex: Female
  Weight: 49.43 kg

DRUGS (3)
  1. PANTOPRAZOLE [Suspect]
     Active Substance: PANTOPRAZOLE SODIUM
     Indication: GASTRIC DISORDER
     Dosage: 40 MG, DAILY
     Dates: end: 2013
  2. PANTOPRAZOLE [Suspect]
     Active Substance: PANTOPRAZOLE SODIUM
     Indication: GASTROINTESTINAL DISORDER
  3. PERCOCET [Suspect]
     Active Substance: ACETAMINOPHEN\OXYCODONE HYDROCHLORIDE
     Indication: GASTRIC DISORDER
     Dosage: UNK

REACTIONS (5)
  - Gastrointestinal disorder [Unknown]
  - Intestinal ulcer [Unknown]
  - Irritable bowel syndrome [Unknown]
  - Drug intolerance [Unknown]
  - Drug ineffective [Unknown]
